FAERS Safety Report 15048813 (Version 4)
Quarter: 2019Q3

REPORT INFORMATION
  Report Type: Spontaneous
  Country: US (occurrence: US)
  Receive Date: 20180622
  Receipt Date: 20190912
  Transmission Date: 20191004
  Serious: No
  Sender: FDA-Public Use
  Company Number: US-PFIZER INC-2018254825

PATIENT
  Age: 42 Year
  Sex: Female
  Weight: 109 kg

DRUGS (2)
  1. LYRICA [Suspect]
     Active Substance: PREGABALIN
     Indication: POST LAMINECTOMY SYNDROME
     Dosage: 200 MG, 2 TIMES A DAY FOR 30 DAYS
     Route: 048
  2. LYRICA [Suspect]
     Active Substance: PREGABALIN
     Indication: FIBROMYALGIA
     Dosage: 150 MG, TWICE A DAY (IN THE MORNING AND AT NIGHT)
     Route: 048
     Dates: start: 2017, end: 20180820

REACTIONS (4)
  - Insomnia [Not Recovered/Not Resolved]
  - Fatigue [Unknown]
  - Nasopharyngitis [Unknown]
  - Pain [Not Recovered/Not Resolved]

NARRATIVE: CASE EVENT DATE: 2018
